FAERS Safety Report 23216352 (Version 1)
Quarter: 2023Q4

REPORT INFORMATION
  Report Type: Spontaneous
  Country: CA (occurrence: CA)
  Receive Date: 20231122
  Receipt Date: 20231122
  Transmission Date: 20240110
  Serious: Yes (Life-Threatening, Hospitalization, Disabling)
  Sender: FDA-Public Use
  Company Number: CA-BAXTER-2023BAX036147

PATIENT
  Age: 33 Year
  Sex: Male
  Weight: 91 kg

DRUGS (7)
  1. DOXORUBICIN [Suspect]
     Active Substance: DOXORUBICIN
     Dosage: 2.0 MILLIGRAM (DOSAGE FORM: INJECTION)
     Route: 042
  2. DOXORUBICIN [Suspect]
     Active Substance: DOXORUBICIN
     Dosage: 2.0 MILLIGRAM (DOSAGE FORM: INJECTION)
     Route: 042
  3. ADCETRIS [Suspect]
     Active Substance: BRENTUXIMAB VEDOTIN
     Dosage: 50.0 MILLIGRAM (DOSAGE FORM: POWDER FOR SOLUTION INTRAVENOUS)
     Route: 042
  4. ADCETRIS [Suspect]
     Active Substance: BRENTUXIMAB VEDOTIN
     Dosage: 50.0 MILLIGRAM (DOSAGE FORM: POWDER FOR SOLUTION INTRAVENOUS)
     Route: 042
  5. DACARBAZINE [Suspect]
     Active Substance: DACARBAZINE
     Dosage: 600.0 MILLIGRAM (DOSAGE FORM: POWDER FOR SOLUTION INTRAVENOUS)
     Route: 042
  6. VINBLASTINE SULFATE [Suspect]
     Active Substance: VINBLASTINE SULFATE
     Dosage: 1.0 MILLIGRAM (DOSAGE FORM: NOT SPECIFIED)
     Route: 042
  7. VINBLASTINE SULFATE [Suspect]
     Active Substance: VINBLASTINE SULFATE
     Dosage: 1.0 MILLIGRAM (DOSAGE FORM: NOT SPECIFIED)
     Route: 042

REACTIONS (1)
  - Acute myocardial infarction [Recovered/Resolved with Sequelae]
